FAERS Safety Report 5885187-6 (Version None)
Quarter: 2008Q3

REPORT INFORMATION
  Report Type: 
  Country: None (occurrence: None)
  Receive Date: 20080916
  Receipt Date: 20080902
  Transmission Date: 20090109
  Serious: Yes (Hospitalization)
  Sender: FDA-Public Use
  Company Number: PHHO1996CA04476

PATIENT
  Sex: Male
  Weight: 83 kg

DRUGS (12)
  1. NEORAL [Suspect]
     Route: 048
     Dates: start: 19960229
  2. PREDNISONE TAB [Suspect]
     Route: 048
  3. IMURAN [Suspect]
     Route: 048
     Dates: end: 19960408
  4. LASIX [Concomitant]
     Dosage: UNSPECIFIED
     Route: 048
  5. PRAVACHOL [Concomitant]
     Dosage: UNSPECIFIED
     Route: 048
  6. MAALOX [Concomitant]
     Dosage: UNSPECIFIED
     Route: 048
     Dates: end: 19960418
  7. MYCOSTATIN [Concomitant]
     Dosage: UNSPECIFIED
     Route: 048
  8. GENTAMYCIN SULFATE [Concomitant]
     Dosage: UNSPECIFIED
     Route: 042
     Dates: start: 19960408, end: 19960401
  9. GENTAMYCIN SULFATE [Concomitant]
     Dosage: UNSPECIFIED
     Route: 042
     Dates: start: 19960409, end: 19960411
  10. ATIVAN [Concomitant]
     Dosage: UNSPECIFIED
     Route: 048
  11. TYLENOL (CAPLET) [Concomitant]
     Dosage: UNSPECIFIED
     Route: 048
  12. EMPRACET [Concomitant]
     Dosage: UNSPECIFIED
     Route: 048

REACTIONS (4)
  - ABDOMINAL PAIN [None]
  - ASTHENIA [None]
  - DYSPNOEA [None]
  - VIRAL INFECTION [None]
